FAERS Safety Report 5287086-X (Version None)
Quarter: 2007Q1

REPORT INFORMATION
  Report Type: 
  Country: None (occurrence: None)
  Receive Date: 20070330
  Receipt Date: 20070309
  Transmission Date: 20070707
  Serious: Yes (Other)
  Sender: FDA-Public Use
  Company Number: US200703003519

PATIENT
  Age: 38 Year
  Sex: Female

DRUGS (2)
  1. FLUOXETINE HCL [Suspect]
  2. OLANZAPINE [Suspect]
     Indication: SCHIZOPHRENIA, PARANOID TYPE

REACTIONS (19)
  - AGITATION [None]
  - ANHEDONIA [None]
  - DEPRESSION [None]
  - DISTURBANCE IN ATTENTION [None]
  - DISTURBANCE IN SOCIAL BEHAVIOUR [None]
  - HYPERSOMNIA [None]
  - IMPAIRED WORK ABILITY [None]
  - LETHARGY [None]
  - MEMORY IMPAIRMENT [None]
  - NEGATIVE THOUGHTS [None]
  - OBSESSIVE RUMINATION [None]
  - OVERWEIGHT [None]
  - PARANOID PERSONALITY DISORDER [None]
  - PSYCHOMOTOR RETARDATION [None]
  - SCHIZOPHRENIA [None]
  - SELF ESTEEM DECREASED [None]
  - SUICIDE ATTEMPT [None]
  - THINKING ABNORMAL [None]
  - WEIGHT INCREASED [None]
